FAERS Safety Report 17047795 (Version 1)
Quarter: 2019Q4

REPORT INFORMATION
  Report Type: Spontaneous
  Country: US (occurrence: US)
  Receive Date: 20191119
  Receipt Date: 20191119
  Transmission Date: 20200122
  Serious: Yes (Other)
  Sender: FDA-Public Use
  Company Number: US-PFIZER INC-2019497960

PATIENT
  Age: 58 Year
  Sex: Female
  Weight: 163.2 kg

DRUGS (2)
  1. EMBEDA [Suspect]
     Active Substance: MORPHINE SULFATE\NALTREXONE HYDROCHLORIDE
     Indication: BACK PAIN
  2. EMBEDA [Suspect]
     Active Substance: MORPHINE SULFATE\NALTREXONE HYDROCHLORIDE
     Indication: NEUROPATHY PERIPHERAL
     Dosage: UNK, 2X/DAY[50-2 MG BY MOUTH TWICE PER DAY; EVERY TWELVE HOURS]
     Route: 048
     Dates: start: 2015

REACTIONS (1)
  - Cerebrovascular accident [Unknown]
